FAERS Safety Report 14140898 (Version 2)
Quarter: 2018Q1

REPORT INFORMATION
  Report Type: Spontaneous
  Country: FR (occurrence: FR)
  Receive Date: 20171030
  Receipt Date: 20180119
  Transmission Date: 20180508
  Serious: Yes (Death)
  Sender: FDA-Public Use
  Company Number: FR-NAPPMUNDI-GBR-2017-0049461

PATIENT
  Age: 92 Year
  Sex: Female
  Weight: 45 kg

DRUGS (7)
  1. OXYCONTIN [Interacting]
     Active Substance: OXYCODONE HYDROCHLORIDE
     Indication: SPINAL PAIN
  2. CREON [Concomitant]
     Active Substance: PANCRELIPASE AMYLASE\PANCRELIPASE LIPASE\PANCRELIPASE PROTEASE
     Indication: PANCREATIC OPERATION
     Dosage: 2 DF, DAILY
     Route: 048
     Dates: start: 2005, end: 20170930
  3. INSULIN [Concomitant]
     Active Substance: INSULIN NOS
     Indication: DIABETES MELLITUS
     Dosage: UNK UNK, PRN
     Dates: start: 2005, end: 20170930
  4. LYRICA [Interacting]
     Active Substance: PREGABALIN
     Indication: ESCHAR
  5. OXYCONTIN [Suspect]
     Active Substance: OXYCODONE HYDROCHLORIDE
     Indication: PAIN
     Dosage: 15 MG, DAILY
     Route: 048
     Dates: start: 201205, end: 201709
  6. LYRICA [Interacting]
     Active Substance: PREGABALIN
     Indication: PAIN
     Dosage: 25 MG, BID
     Route: 048
     Dates: start: 20170913, end: 20170930
  7. DOLIPRANE [Concomitant]
     Active Substance: ACETAMINOPHEN

REACTIONS (7)
  - Lung infection [Fatal]
  - Somnolence [Fatal]
  - Cystitis [Fatal]
  - Potentiating drug interaction [Fatal]
  - Confusional state [Fatal]
  - Pulmonary oedema [Fatal]
  - Dehydration [Fatal]

NARRATIVE: CASE EVENT DATE: 201709
